FAERS Safety Report 18518337 (Version 7)
Quarter: 2021Q2

REPORT INFORMATION
  Report Type: Report from Study
  Country: CO (occurrence: CO)
  Receive Date: 20201118
  Receipt Date: 20210511
  Transmission Date: 20210717
  Serious: Yes (Disabling, Other)
  Sender: FDA-Public Use
  Company Number: CO-TAKEDA-CO202011904

PATIENT
  Age: 29 Year
  Sex: Female
  Weight: 100 kg

DRUGS (10)
  1. ICATIBANT [Suspect]
     Active Substance: ICATIBANT ACETATE
     Indication: HEREDITARY ANGIOEDEMA
     Dosage: 30 MILLIGRAM/ 3ML , Q6HR
     Route: 058
     Dates: start: 20150502
  2. ICATIBANT [Suspect]
     Active Substance: ICATIBANT ACETATE
     Dosage: 30 MILLIGRAM/ 3ML, PRN
     Route: 058
     Dates: start: 20150502
  3. ICATIBANT [Suspect]
     Active Substance: ICATIBANT ACETATE
     Dosage: 30 MILLIGRAM/ 3ML, Q6HR
     Route: 058
     Dates: start: 20200429, end: 20200429
  4. ICATIBANT [Suspect]
     Active Substance: ICATIBANT ACETATE
     Indication: HEREDITARY ANGIOEDEMA
     Dosage: 30 MILLIGRAM/ 3ML , Q6HR
     Route: 058
     Dates: start: 20150502
  5. ICATIBANT [Suspect]
     Active Substance: ICATIBANT ACETATE
     Dosage: 30 MILLIGRAM/ 3ML, Q6HR
     Route: 058
     Dates: start: 20200907
  6. ICATIBANT [Suspect]
     Active Substance: ICATIBANT ACETATE
     Dosage: 30 MILLIGRAM/ 3ML, PRN
     Route: 058
     Dates: start: 20150502
  7. ICATIBANT [Suspect]
     Active Substance: ICATIBANT ACETATE
     Dosage: 30 MILLIGRAM/ 3ML, Q6HR
     Route: 058
     Dates: start: 20200907
  8. ICATIBANT [Suspect]
     Active Substance: ICATIBANT ACETATE
     Dosage: 30 MILLIGRAM/ 3ML, PRN
     Route: 058
     Dates: start: 20150502
  9. ICATIBANT [Suspect]
     Active Substance: ICATIBANT ACETATE
     Dosage: 30 MILLIGRAM/ 3ML, PRN
     Route: 058
     Dates: start: 20150502
  10. ICATIBANT [Suspect]
     Active Substance: ICATIBANT ACETATE
     Dosage: 30 MILLIGRAM/ 3ML, Q6HR
     Route: 058
     Dates: start: 20200429, end: 20200429

REACTIONS (16)
  - Cough [Unknown]
  - Muscular weakness [Unknown]
  - Discouragement [Not Recovered/Not Resolved]
  - Urticaria [Unknown]
  - Headache [Recovered/Resolved]
  - COVID-19 [Not Recovered/Not Resolved]
  - Dysphagia [Recovered/Resolved]
  - Odynophagia [Recovered/Resolved]
  - Impaired work ability [Not Recovered/Not Resolved]
  - Pyrexia [Unknown]
  - Fatigue [Unknown]
  - Discomfort [Unknown]
  - Insomnia [Unknown]
  - Arthralgia [Not Recovered/Not Resolved]
  - Decreased appetite [Not Recovered/Not Resolved]
  - Nausea [Recovered/Resolved]

NARRATIVE: CASE EVENT DATE: 20200611
